FAERS Safety Report 7383173-0 (Version None)
Quarter: 2011Q1

REPORT INFORMATION
  Report Type: 
  Country: None (occurrence: None)
  Receive Date: 20110330
  Receipt Date: 20110322
  Transmission Date: 20110831
  Serious: Yes (Hospitalization)
  Sender: FDA-Public Use
  Company Number: FR-NOVOPROD-325493

PATIENT
  Age: 75 Year
  Sex: Male

DRUGS (4)
  1. GLUCOPHAGE [Concomitant]
  2. REPAGLINIDE [Suspect]
     Indication: PRODUCT USED FOR UNKNOWN INDICATION
     Route: 065
  3. PLAVIX [Concomitant]
  4. CRESTOR [Concomitant]

REACTIONS (1)
  - INFLAMMATION [None]
